FAERS Safety Report 19805333 (Version 5)
Quarter: 2025Q3

REPORT INFORMATION
  Report Type: Report from Study
  Country: EU (occurrence: EU)
  Receive Date: 20210908
  Receipt Date: 20250703
  Transmission Date: 20251020
  Serious: Yes (Hospitalization, Other)
  Sender: MYLAN
  Company Number: EU-002147023-NVSC2021DE070211

PATIENT
  Sex: Male

DRUGS (40)
  1. CELECOXIB [Suspect]
     Active Substance: CELECOXIB
     Indication: Psoriatic arthropathy
     Dosage: 200 MILLIGRAM, QD(200 MG, QD)
     Dates: start: 20200107, end: 20200120
  2. CELECOXIB [Suspect]
     Active Substance: CELECOXIB
     Dosage: 200 MILLIGRAM, QD(200 MG, QD)
     Route: 065
     Dates: start: 20200107, end: 20200120
  3. CELECOXIB [Suspect]
     Active Substance: CELECOXIB
     Dosage: 200 MILLIGRAM, QD(200 MG, QD)
     Route: 065
     Dates: start: 20200107, end: 20200120
  4. CELECOXIB [Suspect]
     Active Substance: CELECOXIB
     Dosage: 200 MILLIGRAM, QD(200 MG, QD)
     Dates: start: 20200107, end: 20200120
  5. COSENTYX [Suspect]
     Active Substance: SECUKINUMAB
     Indication: Psoriatic arthropathy
     Dosage: 150 MILLIGRAM, MONTHLY (150 MG, QMO)
     Dates: start: 20180803, end: 20200406
  6. COSENTYX [Suspect]
     Active Substance: SECUKINUMAB
     Dosage: 150 MILLIGRAM, MONTHLY (150 MG, QMO)
     Dates: start: 20180803, end: 20200406
  7. COSENTYX [Suspect]
     Active Substance: SECUKINUMAB
     Dosage: 150 MILLIGRAM, MONTHLY (150 MG, QMO)
     Route: 065
     Dates: start: 20180803, end: 20200406
  8. COSENTYX [Suspect]
     Active Substance: SECUKINUMAB
     Dosage: 150 MILLIGRAM, MONTHLY (150 MG, QMO)
     Route: 065
     Dates: start: 20180803, end: 20200406
  9. COSENTYX [Suspect]
     Active Substance: SECUKINUMAB
     Dosage: 200 MILLIGRAM, QD
     Route: 065
     Dates: start: 20200107
  10. COSENTYX [Suspect]
     Active Substance: SECUKINUMAB
     Dosage: 200 MILLIGRAM, QD
     Route: 065
     Dates: start: 20200107
  11. COSENTYX [Suspect]
     Active Substance: SECUKINUMAB
     Dosage: 200 MILLIGRAM, QD
     Dates: start: 20200107
  12. COSENTYX [Suspect]
     Active Substance: SECUKINUMAB
     Dosage: 200 MILLIGRAM, QD
     Dates: start: 20200107
  13. COSENTYX [Suspect]
     Active Substance: SECUKINUMAB
     Dosage: 300 MILLIGRAM, MONTHLY (300 MG, QMO)
     Route: 065
     Dates: start: 20200407, end: 20200506
  14. COSENTYX [Suspect]
     Active Substance: SECUKINUMAB
     Dosage: 300 MILLIGRAM, MONTHLY (300 MG, QMO)
     Route: 065
     Dates: start: 20200407, end: 20200506
  15. COSENTYX [Suspect]
     Active Substance: SECUKINUMAB
     Dosage: 300 MILLIGRAM, MONTHLY (300 MG, QMO)
     Dates: start: 20200407, end: 20200506
  16. COSENTYX [Suspect]
     Active Substance: SECUKINUMAB
     Dosage: 300 MILLIGRAM, MONTHLY (300 MG, QMO)
     Dates: start: 20200407, end: 20200506
  17. COSENTYX [Suspect]
     Active Substance: SECUKINUMAB
     Dosage: 150 MILLIGRAM, MONTHLY
     Dates: start: 20200707, end: 20200906
  18. COSENTYX [Suspect]
     Active Substance: SECUKINUMAB
     Dosage: 150 MILLIGRAM, MONTHLY
     Dates: start: 20200707, end: 20200906
  19. COSENTYX [Suspect]
     Active Substance: SECUKINUMAB
     Dosage: 150 MILLIGRAM, MONTHLY
     Route: 065
     Dates: start: 20200707, end: 20200906
  20. COSENTYX [Suspect]
     Active Substance: SECUKINUMAB
     Dosage: 150 MILLIGRAM, MONTHLY
     Route: 065
     Dates: start: 20200707, end: 20200906
  21. ADALIMUMAB [Suspect]
     Active Substance: ADALIMUMAB
     Indication: Psoriatic arthropathy
     Dates: start: 20201007, end: 20210511
  22. ADALIMUMAB [Suspect]
     Active Substance: ADALIMUMAB
     Dates: start: 20201007, end: 20210511
  23. ADALIMUMAB [Suspect]
     Active Substance: ADALIMUMAB
     Route: 065
     Dates: start: 20201007, end: 20210511
  24. ADALIMUMAB [Suspect]
     Active Substance: ADALIMUMAB
     Route: 065
     Dates: start: 20201007, end: 20210511
  25. ADALIMUMAB [Suspect]
     Active Substance: ADALIMUMAB
     Dates: start: 20210702, end: 20210728
  26. ADALIMUMAB [Suspect]
     Active Substance: ADALIMUMAB
     Dates: start: 20210702, end: 20210728
  27. ADALIMUMAB [Suspect]
     Active Substance: ADALIMUMAB
     Route: 065
     Dates: start: 20210702, end: 20210728
  28. ADALIMUMAB [Suspect]
     Active Substance: ADALIMUMAB
     Route: 065
     Dates: start: 20210702, end: 20210728
  29. TREMFYA [Suspect]
     Active Substance: GUSELKUMAB
     Indication: Psoriatic arthropathy
     Dates: start: 20210512, end: 20210701
  30. TREMFYA [Suspect]
     Active Substance: GUSELKUMAB
     Route: 065
     Dates: start: 20210512, end: 20210701
  31. TREMFYA [Suspect]
     Active Substance: GUSELKUMAB
     Route: 065
     Dates: start: 20210512, end: 20210701
  32. TREMFYA [Suspect]
     Active Substance: GUSELKUMAB
     Dates: start: 20210512, end: 20210701
  33. TALTZ [Suspect]
     Active Substance: IXEKIZUMAB
     Indication: Psoriatic arthropathy
     Dates: start: 20200728, end: 20240731
  34. TALTZ [Suspect]
     Active Substance: IXEKIZUMAB
     Route: 065
     Dates: start: 20200728, end: 20240731
  35. TALTZ [Suspect]
     Active Substance: IXEKIZUMAB
     Route: 065
     Dates: start: 20200728, end: 20240731
  36. TALTZ [Suspect]
     Active Substance: IXEKIZUMAB
     Dates: start: 20200728, end: 20240731
  37. BIMZELX [Suspect]
     Active Substance: BIMEKIZUMAB-BKZX
     Indication: Psoriatic arthropathy
  38. BIMZELX [Suspect]
     Active Substance: BIMEKIZUMAB-BKZX
     Route: 065
  39. BIMZELX [Suspect]
     Active Substance: BIMEKIZUMAB-BKZX
     Route: 065
  40. BIMZELX [Suspect]
     Active Substance: BIMEKIZUMAB-BKZX

REACTIONS (4)
  - Cholangitis [Recovered/Resolved]
  - Cholecystitis acute [Recovered/Resolved]
  - Cholecystectomy [Recovered/Resolved]
  - Off label use [Unknown]

NARRATIVE: CASE EVENT DATE: 20200107
